FAERS Safety Report 6578840-2 (Version None)
Quarter: 2010Q1

REPORT INFORMATION
  Report Type: 
  Country: None (occurrence: None)
  Receive Date: 20100202
  Receipt Date: 20100118
  Transmission Date: 20100710
  Serious: Yes (Other)
  Sender: FDA-Public Use
  Company Number: 1-21345582

PATIENT
  Age: 50 Year
  Sex: Female
  Weight: 115.2136 kg

DRUGS (4)
  1. LAMOTRIGINE [Suspect]
     Indication: CONVULSION
     Dosage: 100 MG, ORAL
     Route: 048
     Dates: start: 20090401
  2. PHENOBARBITAL TAB [Concomitant]
  3. LISINOPRIL [Concomitant]
  4. MULTI-VITAMINS [Concomitant]

REACTIONS (5)
  - CONVULSION [None]
  - DRUG LEVEL DECREASED [None]
  - HEADACHE [None]
  - PRODUCT SUBSTITUTION ISSUE [None]
  - VISION BLURRED [None]
